FAERS Safety Report 5623987-8 (Version None)
Quarter: 2008Q1

REPORT INFORMATION
  Report Type: 
  Country: None (occurrence: None)
  Receive Date: 20080211
  Receipt Date: 20080211
  Transmission Date: 20080703
  Serious: Yes (Death)
  Sender: FDA-Public Use
  Company Number: None

PATIENT
  Age: 18 Day
  Sex: Female
  Weight: 3.6 kg

DRUGS (2)
  1. INOMAX [Suspect]
     Indication: PULMONARY HYPERTENSION
     Dosage: 20 PPM;CONT;INH
     Route: 055
     Dates: start: 20071220, end: 20071221
  2. INOMAX [Suspect]

REACTIONS (5)
  - BRADYCARDIA NEONATAL [None]
  - CARDIO-RESPIRATORY ARREST [None]
  - HYPOTONIA NEONATAL [None]
  - MEDICAL DEVICE COMPLICATION [None]
  - OXYGEN SATURATION DECREASED [None]
